FAERS Safety Report 16321808 (Version 1)
Quarter: 2019Q2

REPORT INFORMATION
  Report Type: Spontaneous
  Country: DE (occurrence: DE)
  Receive Date: 20190516
  Receipt Date: 20190516
  Transmission Date: 20190711
  Serious: Yes (Other)
  Sender: FDA-Public Use
  Company Number: DE-ALLERGAN-1920326US

PATIENT
  Sex: Male

DRUGS (1)
  1. GANFORT [Suspect]
     Active Substance: BIMATOPROST\TIMOLOL
     Indication: INTRAOCULAR PRESSURE INCREASED
     Dosage: UNK
     Route: 047
     Dates: start: 2009

REACTIONS (16)
  - Eyelid ptosis [Unknown]
  - Ocular hyperaemia [Unknown]
  - Growth of eyelashes [Unknown]
  - Cataract [Unknown]
  - Foreign body sensation in eyes [Unknown]
  - Lid sulcus deepened [Unknown]
  - Hallucination, visual [Unknown]
  - Glaucoma [Unknown]
  - Periorbital fat atrophy [Unknown]
  - Macular degeneration [Unknown]
  - Intentional product misuse [Unknown]
  - Dyspnoea [Unknown]
  - Arrhythmia [Recovering/Resolving]
  - Eye irritation [Unknown]
  - Asthma [Not Recovered/Not Resolved]
  - Intraocular pressure test abnormal [Recovered/Resolved]

NARRATIVE: CASE EVENT DATE: 2017
